FAERS Safety Report 5032751-2 (Version None)
Quarter: 2006Q2

REPORT INFORMATION
  Report Type: 
  Country: None (occurrence: None)
  Receive Date: 20060620
  Receipt Date: 20060620
  Transmission Date: 20061013
  Serious: Yes (Life-Threatening, Hospitalization)
  Sender: FDA-Public Use
  Company Number: None

PATIENT
  Age: 53 Year
  Sex: Male
  Weight: 109.8 kg

DRUGS (12)
  1. AMIODARONE HCL [Suspect]
     Indication: VENTRICULAR ARRHYTHMIA
     Dosage: 200 MG TWO TIMES DAILY PO [GREATER THAN 1 YEAR]
     Route: 048
  2. DIGOXIN [Suspect]
     Indication: CARDIAC FAILURE CONGESTIVE
     Dosage: 0.125 MG DAILY PO [GREATER THAN 1 YEAR]
     Route: 048
  3. DIGOXIN [Suspect]
     Indication: CARDIOMYOPATHY
     Dosage: 0.125 MG DAILY PO [GREATER THAN 1 YEAR]
     Route: 048
  4. DIGOXIN [Suspect]
     Indication: VENTRICULAR ARRHYTHMIA
     Dosage: 0.125 MG DAILY PO [GREATER THAN 1 YEAR]
     Route: 048
  5. CAPTOPRIL [Concomitant]
  6. DIGOXIN [Concomitant]
  7. SIMVASTATIN [Concomitant]
  8. AMIODARONE HCL [Concomitant]
  9. CARVEDILOL [Concomitant]
  10. EZETIMIBE [Concomitant]
  11. HUMULIN 70/30 [Concomitant]
  12. FUROSEMIDE [Concomitant]

REACTIONS (5)
  - BRADYCARDIA [None]
  - CARDIAC ARREST [None]
  - HYPERKALAEMIA [None]
  - HYPOTENSION [None]
  - HYPOTHYROIDISM [None]
